FAERS Safety Report 18506091 (Version 1)
Quarter: 2020Q4

REPORT INFORMATION
  Report Type: Spontaneous
  Country: US (occurrence: US)
  Receive Date: 20201116
  Receipt Date: 20201116
  Transmission Date: 20210114
  Serious: No
  Sender: FDA-Public Use
  Company Number: US-PFIZER INC-2020444074

PATIENT
  Age: 58 Year
  Sex: Female

DRUGS (1)
  1. IBRANCE [Suspect]
     Active Substance: PALBOCICLIB
     Indication: BREAST CANCER FEMALE
     Dosage: 125 MG, CYCLIC [ON DAYS 1 TO 21 FOLLOWED BY 7 DAYS OF REST, REPEATED EVERY 28 DAYS]
     Route: 048
     Dates: start: 202010

REACTIONS (4)
  - Crying [Unknown]
  - Abdominal discomfort [Unknown]
  - Negative thoughts [Unknown]
  - Stress [Unknown]
